FAERS Safety Report 25761376 (Version 1)
Quarter: 2025Q3

REPORT INFORMATION
  Report Type: Spontaneous
  Country: EU (occurrence: EU)
  Receive Date: 20250904
  Receipt Date: 20250904
  Transmission Date: 20251021
  Serious: Yes (Other)
  Sender: PFIZER
  Company Number: None

PATIENT
  Age: 52 Year
  Sex: Female

DRUGS (3)
  1. PACLITAXEL [Suspect]
     Active Substance: PACLITAXEL
     Indication: Triple negative breast cancer
     Route: 042
     Dates: start: 20230206
  2. CARBOPLATIN [Suspect]
     Active Substance: CARBOPLATIN
     Indication: Triple negative breast cancer
     Route: 042
     Dates: start: 20230206
  3. KEYTRUDA [Suspect]
     Active Substance: PEMBROLIZUMAB
     Indication: Triple negative breast cancer
     Route: 042
     Dates: start: 20230206

REACTIONS (11)
  - Hepatic cytolysis [Recovering/Resolving]
  - Hyperthyroidism [Recovered/Resolved]
  - Neutropenia [Recovered/Resolved]
  - Hypothyroidism [Recovering/Resolving]
  - Asthenia [Recovering/Resolving]
  - Epistaxis [Recovered/Resolved]
  - Restless legs syndrome [Recovered/Resolved]
  - Mucosal inflammation [Recovered/Resolved]
  - Dysuria [Recovered/Resolved]
  - Decreased appetite [Recovered/Resolved]
  - Off label use [Unknown]

NARRATIVE: CASE EVENT DATE: 20230101
